FAERS Safety Report 4507804-5 (Version None)
Quarter: 2004Q4

REPORT INFORMATION
  Report Type: 
  Country: None (occurrence: None)
  Receive Date: 20041123
  Receipt Date: 20041005
  Transmission Date: 20050328
  Serious: Yes (Disabling)
  Sender: FDA-Public Use
  Company Number: US-BRISTOL-MYERS SQUIBB COMPANY-12722476

PATIENT
  Age: 50 Year
  Sex: Female

DRUGS (5)
  1. ABILIFY [Suspect]
     Indication: BIPOLAR DISORDER
     Dosage: 7.5 MG FROM 14-JAN, 15 MG FROM 20-JAN, 10 MG FROM 02-FEB, 5 MG FROM 03-MAR 2004, D'C 10-MAR-2004
     Dates: start: 20040114, end: 20040310
  2. ZYPREXA [Concomitant]
     Dates: start: 19961122
  3. LEXAPRO [Concomitant]
     Dates: start: 20030527
  4. CLONAZEPAM [Concomitant]
     Dates: start: 19960715
  5. WELLBUTRIN XL [Concomitant]
     Dates: start: 20040210

REACTIONS (1)
  - EROSIVE OESOPHAGITIS [None]
